FAERS Safety Report 8998400 (Version 1)
Quarter: 2013Q1

REPORT INFORMATION
  Report Type: Report from Study
  Country: RU (occurrence: RU)
  Receive Date: 20130103
  Receipt Date: 20130103
  Transmission Date: 20140127
  Serious: Yes (Other)
  Sender: FDA-Public Use
  Company Number: RU-ROCHE-1175067

PATIENT
  Age: 57 Year
  Sex: Male
  Weight: 98 kg

DRUGS (4)
  1. BEVACIZUMAB [Suspect]
     Indication: COLON CANCER
     Route: 065
     Dates: start: 20120117, end: 20120529
  2. 5-FLUOROURACIL [Concomitant]
     Indication: COLON CANCER
     Dosage: 400/2400 MG/M2
     Route: 042
     Dates: start: 20120117, end: 20120508
  3. LEUCOVORIN [Concomitant]
     Indication: COLON CANCER
     Route: 042
     Dates: start: 20120117, end: 20120508
  4. IRINOTECAN [Concomitant]
     Indication: COLON CANCER
     Route: 042
     Dates: start: 20120117, end: 20120508

REACTIONS (1)
  - Disease progression [Unknown]
